FAERS Safety Report 7321792-8 (Version None)
Quarter: 2011Q1

REPORT INFORMATION
  Report Type: 
  Country: None (occurrence: None)
  Receive Date: 20110228
  Receipt Date: 20110222
  Transmission Date: 20110831
  Serious: Yes (Death, Other)
  Sender: FDA-Public Use
  Company Number: CH-PFIZER INC-2010167836

PATIENT
  Age: 54 Year
  Sex: Female
  Weight: 53 kg

DRUGS (11)
  1. PANTOZOL [Concomitant]
     Dosage: 40 MG, 1X/DAY
     Route: 048
  2. TORASEMIDE [Concomitant]
     Dosage: 20 MG, 2X/DAY
     Route: 048
  3. MAGNESIUM [Concomitant]
     Dosage: 10 MMOL, 2X/DAY
     Route: 048
  4. CORDARONE [Interacting]
     Indication: ATRIAL FIBRILLATION
     Dosage: 200 MG, 4X/DAY
     Route: 048
     Dates: start: 20101015, end: 20101024
  5. POTASSIUM CHLORIDE [Concomitant]
     Dosage: 16 MMOL, 4X/DAY
     Route: 048
  6. BENZYLPENICILLIN ^GRUENENTHAL^ [Concomitant]
     Dosage: 4000000 IU, 4X/DAY
     Route: 042
     Dates: start: 20101019
  7. GARAMYCIN [Concomitant]
     Dosage: 250 MG, 1X/DAY
     Route: 042
     Dates: start: 20101023
  8. DIFLUCAN [Suspect]
     Indication: DEVICE RELATED INFECTION
     Dosage: 400 MG, 1X/DAY
     Route: 042
     Dates: start: 20101015
  9. MARCOUMAR [Concomitant]
     Dosage: 1.5 MG, FREQUENCY UNKNOWN
     Route: 048
  10. METOLAZONE [Concomitant]
     Dosage: 5 MG, 2X/DAY
     Route: 048
  11. TEMESTA [Concomitant]
     Dosage: 1 MG DAILY AS NECESSARY
     Route: 048

REACTIONS (5)
  - DRUG INTERACTION [None]
  - DYSPNOEA [None]
  - SUDDEN DEATH [None]
  - PAIN IN EXTREMITY [None]
  - PNEUMOTHORAX [None]
